FAERS Safety Report 10896110 (Version 1)
Quarter: 2015Q1

REPORT INFORMATION
  Report Type: Spontaneous
  Country: AR (occurrence: AR)
  Receive Date: 20150309
  Receipt Date: 20150309
  Transmission Date: 20150721
  Serious: Yes (Death)
  Sender: FDA-Public Use
  Company Number: AR-ROCHE-1548551

PATIENT
  Age: 60 Year
  Sex: Female

DRUGS (1)
  1. LUCENTIS [Suspect]
     Active Substance: RANIBIZUMAB
     Indication: RETINAL HAEMORRHAGE
     Route: 050
     Dates: start: 2014

REACTIONS (4)
  - Off label use [Unknown]
  - Dizziness [Unknown]
  - Infarction [Fatal]
  - Cardiogenic shock [Fatal]

NARRATIVE: CASE EVENT DATE: 20141110
